FAERS Safety Report 9485815 (Version 1)
Quarter: 2013Q3

REPORT INFORMATION
  Report Type: Spontaneous
  Country: US (occurrence: None)
  Receive Date: 20130827
  Receipt Date: 20130827
  Transmission Date: 20140515
  Serious: No
  Sender: FDA-Public Use
  Company Number: None

PATIENT
  Age: 57 Year
  Sex: Male
  Weight: 111.3 kg

DRUGS (1)
  1. CLONIDINE [Suspect]
     Dosage: 1 TAB, BID, PO
     Route: 048
     Dates: start: 20111101, end: 20111118

REACTIONS (3)
  - Swollen tongue [None]
  - Swelling [None]
  - Angioedema [None]
